FAERS Safety Report 10245188 (Version 2)
Quarter: 2014Q2

REPORT INFORMATION
  Report Type: Report from Study
  Country: BR (occurrence: BR)
  Receive Date: 20140618
  Receipt Date: 20140618
  Transmission Date: 20141212
  Serious: Yes (Death)
  Sender: FDA-Public Use
  Company Number: BR-ABBVIE-11P-020-0878117-00

PATIENT
  Age: 44 Year
  Sex: Female
  Weight: 90 kg

DRUGS (11)
  1. HUMIRA [Suspect]
     Indication: RHEUMATOID ARTHRITIS
     Route: 058
     Dates: start: 20100501, end: 201110
  2. METHOTREXATE [Concomitant]
     Indication: SPONDYLITIS
     Route: 048
     Dates: start: 201005
  3. INDOMETACIN [Concomitant]
     Indication: SPONDYLITIS
     Route: 048
     Dates: start: 201005
  4. CYCLOBENZAPRINE [Concomitant]
     Indication: PAIN
     Route: 048
     Dates: start: 201005
  5. CYCLOBENZAPRINE [Concomitant]
     Indication: MUSCLE RELAXANT THERAPY
  6. HYDROXYCHLOROQUINE [Concomitant]
     Indication: PAIN
     Route: 048
     Dates: start: 201005
  7. HYDROXYCHLOROQUINE [Concomitant]
     Indication: MUSCLE RELAXANT THERAPY
  8. FOLIC ACID [Concomitant]
     Indication: ANAEMIA
     Route: 048
     Dates: start: 201005
  9. RANITIDINE [Concomitant]
     Indication: ABDOMINAL PAIN UPPER
     Route: 048
     Dates: start: 201005
  10. OMEPRAZOLE [Concomitant]
     Indication: ABDOMINAL PAIN UPPER
     Route: 048
     Dates: start: 201005
  11. PREDNISOLONE [Concomitant]
     Indication: SPONDYLITIS
     Route: 048
     Dates: start: 201005, end: 201105

REACTIONS (2)
  - Breast cancer [Fatal]
  - Nodule [Unknown]
